FAERS Safety Report 23751976 (Version 1)
Quarter: 2024Q2

REPORT INFORMATION
  Report Type: Spontaneous
  Country: US (occurrence: None)
  Receive Date: 20240417
  Receipt Date: 20240417
  Transmission Date: 20240716
  Serious: Yes (Disabling)
  Sender: FDA-Public Use
  Company Number: None

PATIENT
  Age: 66 Year
  Sex: Female

DRUGS (2)
  1. CIPROFLOXACIN [Suspect]
     Active Substance: CIPROFLOXACIN
     Indication: Urinary tract infection
     Dosage: OTHER QUANTITY : 20 TABLET(S);?FREQUENCY : TWICE A DAY;?
     Route: 048
     Dates: start: 20240410, end: 20240412
  2. IBUPROFEN [Concomitant]
     Active Substance: IBUPROFEN

REACTIONS (10)
  - Pain [None]
  - Pyrexia [None]
  - Thirst [None]
  - Insomnia [None]
  - Nightmare [None]
  - Headache [None]
  - Anxiety [None]
  - Logorrhoea [None]
  - Panic attack [None]
  - Joint noise [None]

NARRATIVE: CASE EVENT DATE: 20240410
